FAERS Safety Report 7515445-0 (Version None)
Quarter: 2011Q2

REPORT INFORMATION
  Report Type: 
  Country: None (occurrence: None)
  Receive Date: 20110601
  Receipt Date: 20110526
  Transmission Date: 20111010
  Serious: Yes (Hospitalization)
  Sender: FDA-Public Use
  Company Number: FR-BRISTOL-MYERS SQUIBB COMPANY-15783004

PATIENT
  Sex: Male

DRUGS (1)
  1. KENACORT [Suspect]

REACTIONS (2)
  - INJECTION SITE SCAR [None]
  - INJECTION SITE ABSCESS [None]
